FAERS Safety Report 8009107-3 (Version None)
Quarter: 2011Q4

REPORT INFORMATION
  Report Type: 
  Country: None (occurrence: None)
  Receive Date: 20111227
  Receipt Date: 20111219
  Transmission Date: 20120403
  Serious: Yes (Other)
  Sender: FDA-Public Use
  Company Number: NL-ABBOTT-11P-114-0859687-00

PATIENT
  Sex: Female
  Weight: 84 kg

DRUGS (8)
  1. OMEPRAZOLE [Concomitant]
     Indication: GASTRIC DISORDER
  2. OMEPRAZOLE [Concomitant]
     Indication: PROPHYLAXIS
     Route: 048
     Dates: start: 20080101
  3. ACETAMINOPHEN W/ CODEINE [Concomitant]
     Indication: RHEUMATOID ARTHRITIS
     Dosage: 500/20MG - AS NEEDED
     Route: 048
     Dates: start: 20071201
  4. HUMIRA [Suspect]
     Indication: RHEUMATOID ARTHRITIS
     Route: 058
     Dates: start: 20100222
  5. HUMIRA [Suspect]
     Route: 058
     Dates: start: 20110926, end: 20111101
  6. IBUPROFEN DRAGEE [Concomitant]
     Indication: RHEUMATOID ARTHRITIS
     Route: 048
     Dates: start: 20071201
  7. FOLIC ACID [Concomitant]
     Indication: RHEUMATOID ARTHRITIS
     Route: 048
     Dates: start: 20071201
  8. METHOTREXATE [Concomitant]
     Indication: RHEUMATOID ARTHRITIS
     Dosage: 2.5 MG - 8 UNITS EVERY WEEK
     Route: 048
     Dates: start: 20071201

REACTIONS (3)
  - INFLAMMATION [None]
  - TOOTH DISORDER [None]
  - URINARY TRACT INFECTION [None]
